FAERS Safety Report 20103286 (Version 1)
Quarter: 2021Q4

REPORT INFORMATION
  Report Type: Report from Study
  Country: US (occurrence: US)
  Receive Date: 20211123
  Receipt Date: 20211123
  Transmission Date: 20220303
  Serious: Yes (Death)
  Sender: FDA-Public Use
  Company Number: USA-RTIINT001-2021-US-000040

PATIENT
  Age: 1 Day
  Sex: 0
  Weight: 0.61 kg

DRUGS (2)
  1. CUROSURF [Suspect]
     Active Substance: PORACTANT ALFA
     Dosage: DOSE 1:  2.5ML/KG +/- BUDESONIDE 0.25MG/KG IN A VOLUME OF 1ML/KG (TOTAL 2.1ML)
     Route: 007
     Dates: start: 20211115, end: 20211115
  2. BUDESONIDE [Suspect]
     Active Substance: BUDESONIDE

REACTIONS (1)
  - Pulmonary haemorrhage [Fatal]

NARRATIVE: CASE EVENT DATE: 20211117
